FAERS Safety Report 5331549-5 (Version None)
Quarter: 2007Q2

REPORT INFORMATION
  Report Type: 
  Country: None (occurrence: None)
  Receive Date: 20070522
  Receipt Date: 20070509
  Transmission Date: 20071010
  Serious: Yes (Other)
  Sender: FDA-Public Use
  Company Number: CA-ELI_LILLY_AND_COMPANY-CA200705004394

PATIENT
  Age: 11 Year
  Sex: Male

DRUGS (3)
  1. STRATTERA [Suspect]
     Indication: ATTENTION DEFICIT/HYPERACTIVITY DISORDER
     Dosage: UNK, UNK
     Dates: start: 20070401, end: 20070501
  2. STRATTERA [Suspect]
     Dosage: 25 MG, DAILY (1/D)
     Route: 048
     Dates: start: 20070501
  3. REACTINE [Concomitant]
     Indication: HYPERSENSITIVITY
     Dosage: 10 MG, UNK
     Dates: start: 20070301

REACTIONS (3)
  - ANAPHYLACTIC REACTION [None]
  - DRUG INEFFECTIVE [None]
  - SWELLING FACE [None]
